FAERS Safety Report 7079066-9 (Version None)
Quarter: 2010Q4

REPORT INFORMATION
  Report Type: 
  Country: None (occurrence: None)
  Receive Date: 20101102
  Receipt Date: 20101028
  Transmission Date: 20110411
  Serious: Yes (Other)
  Sender: FDA-Public Use
  Company Number: US-JNJCH-2010012962

PATIENT
  Sex: Male
  Weight: 81.6 kg

DRUGS (1)
  1. VISINE EYE DROPS [Suspect]
     Indication: PRODUCT USED FOR UNKNOWN INDICATION
     Dosage: TEXT:2 DROPS
     Route: 047

REACTIONS (9)
  - AMBLYOPIA [None]
  - APPLICATION SITE ERYTHEMA [None]
  - APPLICATION SITE PAIN [None]
  - CONJUNCTIVAL DISORDER [None]
  - CORNEAL ABRASION [None]
  - LACRIMATION INCREASED [None]
  - PHOTOPHOBIA [None]
  - PRODUCT QUALITY ISSUE [None]
  - VISION BLURRED [None]
